FAERS Safety Report 21018687 (Version 6)
Quarter: 2022Q3

REPORT INFORMATION
  Report Type: Spontaneous
  Country: BR (occurrence: BR)
  Receive Date: 20220628
  Receipt Date: 20220912
  Transmission Date: 20221027
  Serious: Yes (Other)
  Sender: FDA-Public Use
  Company Number: BR-TAKEDA-2021TUS059593

PATIENT

DRUGS (3)
  1. LISDEXAMFETAMINE DIMESYLATE [Suspect]
     Active Substance: LISDEXAMFETAMINE DIMESYLATE
     Indication: Product used for unknown indication
     Dosage: UNK
     Route: 065
  2. LITHIUM [Concomitant]
     Active Substance: LITHIUM
     Dosage: UNK
     Route: 065
  3. QUETIAPINE [Concomitant]
     Active Substance: QUETIAPINE
     Dosage: UNK
     Route: 065

REACTIONS (10)
  - Suicidal ideation [Unknown]
  - Drug abuse [Unknown]
  - Drug ineffective [Unknown]
  - Inappropriate affect [Unknown]
  - Unevaluable event [Unknown]
  - Therapy interrupted [Unknown]
  - Therapeutic product effect delayed [Unknown]
  - Decreased appetite [Unknown]
  - Defaecation urgency [Unknown]
  - Inappropriate schedule of product administration [Unknown]
